FAERS Safety Report 5393423-8 (Version None)
Quarter: 2007Q3

REPORT INFORMATION
  Report Type: 
  Country: None (occurrence: None)
  Receive Date: 20070719
  Receipt Date: 20070719
  Transmission Date: 20080115
  Serious: No
  Sender: FDA-Public Use
  Company Number: None

PATIENT
  Sex: Female

DRUGS (4)
  1. YASMIN [Suspect]
     Dates: start: 20050801, end: 20051218
  2. CLARITIN [Concomitant]
  3. LEXAPRO [Concomitant]
  4. ORTHO CYCLEN TRIPHASIC [Concomitant]

REACTIONS (8)
  - ASTHENIA [None]
  - CEREBELLAR INFARCTION [None]
  - CEREBRAL INFARCTION [None]
  - DEHYDRATION [None]
  - NAUSEA [None]
  - VISUAL DISTURBANCE [None]
  - VISUAL FIELD DEFECT [None]
  - VOMITING [None]
